FAERS Safety Report 4414711-5 (Version None)
Quarter: 2004Q3

REPORT INFORMATION
  Report Type: 
  Country: None (occurrence: None)
  Receive Date: 20040804
  Receipt Date: 20030711
  Transmission Date: 20050211
  Serious: No
  Sender: FDA-Public Use
  Company Number: US-BRISTOL-MYERS SQUIBB COMPANY-12324109

PATIENT
  Age: 44 Year
  Sex: Male
  Weight: 100 kg

DRUGS (6)
  1. GLUCOVANCE [Suspect]
     Indication: DIABETES MELLITUS
     Route: 048
     Dates: start: 20030529
  2. METOPROLOL [Concomitant]
  3. DILANTIN [Concomitant]
  4. PHENOBARBITAL TAB [Concomitant]
  5. DIAZEPAM [Concomitant]
  6. RISPERDAL [Concomitant]

REACTIONS (2)
  - BLOOD GLUCOSE FLUCTUATION [None]
  - WEIGHT INCREASED [None]
